FAERS Safety Report 6903672-2 (Version None)
Quarter: 2010Q3

REPORT INFORMATION
  Report Type: 
  Country: None (occurrence: None)
  Receive Date: 20100803
  Receipt Date: 20081105
  Transmission Date: 20110219
  Serious: No
  Sender: FDA-Public Use
  Company Number: US-PFIZER INC-2008093905

PATIENT
  Sex: Male
  Weight: 93.181 kg

DRUGS (9)
  1. LYRICA [Suspect]
     Indication: DIABETIC NEUROPATHY
     Dates: start: 20081024
  2. ZOCOR [Concomitant]
  3. GLYBURIDE [Concomitant]
  4. LISINOPRIL [Concomitant]
  5. MULTI-VITAMINS [Concomitant]
  6. METFORMIN HCL [Concomitant]
  7. DARVOCET [Concomitant]
  8. TYLENOL [Concomitant]
  9. NAPROXEN [Concomitant]

REACTIONS (2)
  - DYSPEPSIA [None]
  - OVERDOSE [None]
